FAERS Safety Report 8264614-3 (Version None)
Quarter: 2012Q2

REPORT INFORMATION
  Report Type: 
  Country: None (occurrence: None)
  Receive Date: 20120406
  Receipt Date: 20120329
  Transmission Date: 20120825
  Serious: Yes (Hospitalization, Other)
  Sender: FDA-Public Use
  Company Number: US-ABBOTT-12P-163-0920557-00

PATIENT
  Sex: Male
  Weight: 100.33 kg

DRUGS (6)
  1. HUMIRA [Suspect]
     Indication: PSORIATIC ARTHROPATHY
     Route: 058
     Dates: start: 20100101, end: 20111101
  2. PREDNISONE TAB [Suspect]
     Indication: PSORIATIC ARTHROPATHY
  3. BENICAR [Concomitant]
     Indication: HYPERTENSION
  4. PREDNISONE TAB [Concomitant]
  5. SERTRALINE HYDROCHLORIDE [Concomitant]
     Indication: DEPRESSION
  6. HUMIRA [Suspect]
     Route: 058
     Dates: start: 20120127

REACTIONS (17)
  - HYPOAESTHESIA [None]
  - JOINT SWELLING [None]
  - INTERVERTEBRAL DISC PROTRUSION [None]
  - CELLULITIS [None]
  - MOBILITY DECREASED [None]
  - PSORIASIS [None]
  - INFECTION [None]
  - SCIATICA [None]
  - GAIT DISTURBANCE [None]
  - TENDONITIS [None]
  - STAPHYLOCOCCAL INFECTION [None]
  - PATELLOFEMORAL PAIN SYNDROME [None]
  - ILL-DEFINED DISORDER [None]
  - JOINT RANGE OF MOTION DECREASED [None]
  - FEELING HOT [None]
  - RETINAL DETACHMENT [None]
  - LOCALISED INFECTION [None]
